FAERS Safety Report 5961475-X (Version None)
Quarter: 2008Q4

REPORT INFORMATION
  Report Type: 
  Country: None (occurrence: None)
  Receive Date: 20081121
  Receipt Date: 20081110
  Transmission Date: 20090506
  Serious: Yes (Hospitalization)
  Sender: FDA-Public Use
  Company Number: US-ELI_LILLY_AND_COMPANY-US200810006813

PATIENT
  Sex: Female

DRUGS (6)
  1. EVISTA [Suspect]
     Indication: OSTEOPOROSIS
     Dosage: UNK, UNKNOWN
     Route: 065
     Dates: start: 20080901
  2. EVISTA [Suspect]
     Dosage: UNK, UNKNOWN
     Route: 065
     Dates: start: 20081009, end: 20081026
  3. HYDROCHLOROTHIAZIDE [Concomitant]
     Dosage: UNK, UNKNOWN
     Route: 065
  4. ATENOLOL [Concomitant]
     Dosage: UNK, UNKNOWN
     Route: 065
  5. POTASSIUM CHLORIDE [Concomitant]
     Dosage: UNK, UNKNOWN
     Route: 065
  6. MELOXICAM [Concomitant]
     Dosage: UNK, UNKNOWN
     Route: 065

REACTIONS (9)
  - ASTHENIA [None]
  - DEHYDRATION [None]
  - DIPLOPIA [None]
  - DISORIENTATION [None]
  - DIZZINESS [None]
  - HEADACHE [None]
  - HOT FLUSH [None]
  - MIGRAINE [None]
  - NAUSEA [None]
